FAERS Safety Report 21088641 (Version 4)
Quarter: 2022Q4

REPORT INFORMATION
  Report Type: Report from Study
  Country: US (occurrence: US)
  Receive Date: 20220715
  Receipt Date: 20221020
  Transmission Date: 20230113
  Serious: Yes (Hospitalization)
  Sender: FDA-Public Use
  Company Number: US-GLAXOSMITHKLINE-US2022GSK104542

PATIENT

DRUGS (5)
  1. DOSTARLIMAB [Suspect]
     Active Substance: DOSTARLIMAB
     Indication: Breast cancer
     Dosage: 500 MG, Q 3 WEEKS
     Route: 042
     Dates: start: 20220601, end: 20220601
  2. PACLITAXEL [Suspect]
     Active Substance: PACLITAXEL
     Indication: Breast cancer
     Dosage: 360 MG, Z-(3 CONSEC DAY/WEEK)
     Route: 048
     Dates: start: 20220601, end: 20220818
  3. ENCEQUIDAR MESYLATE MONOHYDRATE [Suspect]
     Active Substance: ENCEQUIDAR MESYLATE MONOHYDRATE
     Dosage: 15 MG, Z-(3 CONSEC DAY/WEEK)
     Route: 048
     Dates: start: 20220601, end: 20220818
  4. CARBOPLATIN [Suspect]
     Active Substance: CARBOPLATIN
     Indication: Breast cancer
     Dosage: 225 MG, WE
     Route: 042
     Dates: start: 20220601, end: 20220601
  5. CARBOPLATIN [Suspect]
     Active Substance: CARBOPLATIN
     Dosage: 225 MG, WE
     Route: 042
     Dates: start: 20220907, end: 20220907

REACTIONS (1)
  - Type 1 diabetes mellitus [Recovered/Resolved with Sequelae]

NARRATIVE: CASE EVENT DATE: 20220707
